FAERS Safety Report 25101372 (Version 1)
Quarter: 2025Q1

REPORT INFORMATION
  Report Type: Spontaneous
  Country: CN (occurrence: CN)
  Receive Date: 20250320
  Receipt Date: 20250320
  Transmission Date: 20250409
  Serious: Yes (Other)
  Sender: MERCK SHARP & DOHME LLC
  Company Number: CN-009507513-2263431

PATIENT
  Age: 62 Year
  Sex: Female
  Weight: 70 kg

DRUGS (2)
  1. INVANZ [Suspect]
     Active Substance: ERTAPENEM SODIUM
     Indication: Pneumonia
     Dosage: 1G QD
     Route: 041
     Dates: start: 20250216, end: 20250220
  2. SODIUM CHLORIDE [Concomitant]
     Active Substance: SODIUM CHLORIDE
     Indication: Medication dilution
     Dosage: 50ML QD. CONCENTRATION 0.9%
     Route: 041
     Dates: start: 20250216, end: 20250220

REACTIONS (3)
  - Rash pruritic [Recovered/Resolved]
  - Swelling face [Recovered/Resolved]
  - Macule [Recovered/Resolved]

NARRATIVE: CASE EVENT DATE: 20250220
